FAERS Safety Report 8882842 (Version 1)
Quarter: 2012Q4

REPORT INFORMATION
  Report Type: 
  Country: TR (occurrence: TR)
  Receive Date: 20121102
  Receipt Date: 20121102
  Transmission Date: 20130627
  Serious: Yes (Hospitalization)
  Sender: FDA-Public Use
  Company Number: TR-SANOFI-AVENTIS-2012SA077641

PATIENT
  Age: 39 Year
  Sex: Female
  Weight: 56 kg

DRUGS (11)
  1. ARAVA [Suspect]
     Indication: DRUG USE FOR UNKNOWN INDICATION
     Route: 065
     Dates: start: 20060101, end: 20120410
  2. TOCILIZUMAB [Suspect]
     Indication: RHEUMATOID ARTHRITIS
     Route: 042
     Dates: start: 20111128, end: 20120125
  3. TOCILIZUMAB [Suspect]
     Indication: RHEUMATOID ARTHRITIS
     Route: 042
     Dates: start: 20120307
  4. TOCILIZUMAB [Suspect]
     Indication: RHEUMATOID ARTHRITIS
     Route: 042
     Dates: start: 20120307
  5. SALAZOPYRINE [Suspect]
     Indication: DRUG USE FOR UNKNOWN INDICATION
     Route: 065
     Dates: start: 20060101
  6. CORASPIN [Concomitant]
     Route: 048
     Dates: start: 19960101
  7. DELTACORTRIL [Concomitant]
     Route: 048
     Dates: start: 20060101
  8. RANTUDIL [Concomitant]
     Route: 048
     Dates: start: 20110927
  9. DAFLON [Concomitant]
     Route: 065
     Dates: start: 20060101
  10. AUGMENTIN [Concomitant]
     Route: 048
  11. CHOLECALCIFEROL [Concomitant]

REACTIONS (2)
  - Myomectomy [Recovered/Resolved]
  - Alanine aminotransferase increased [Recovered/Resolved]
